FAERS Safety Report 9899436 (Version 1)
Quarter: 2014Q1

REPORT INFORMATION
  Report Type: Spontaneous
  Country: JP (occurrence: JP)
  Receive Date: 20140214
  Receipt Date: 20140214
  Transmission Date: 20141002
  Serious: Yes (Other)
  Sender: FDA-Public Use
  Company Number: JP-TAKEDA-2014TJP001489

PATIENT
  Age: 53 Year
  Sex: Female

DRUGS (1)
  1. NESINA TABLETS 25MG [Suspect]
     Dosage: UNK
     Route: 048
     Dates: start: 201303, end: 201303

REACTIONS (1)
  - Erythema multiforme [Unknown]
